FAERS Safety Report 20309289 (Version 1)
Quarter: 2022Q1

REPORT INFORMATION
  Report Type: Spontaneous
  Country: CN (occurrence: None)
  Receive Date: 20220107
  Receipt Date: 20220107
  Transmission Date: 20220423
  Serious: Yes (Hospitalization)
  Sender: FDA-Public Use
  Company Number: 2022A002163

PATIENT
  Age: 27457 Day
  Sex: Male

DRUGS (1)
  1. DAPAGLIFLOZIN [Suspect]
     Active Substance: DAPAGLIFLOZIN
     Indication: Type 2 diabetes mellitus
     Route: 048
     Dates: start: 20211202, end: 20211215

REACTIONS (6)
  - Hyperkalaemia [Recovering/Resolving]
  - Renal impairment [Recovering/Resolving]
  - Abdominal distension [Unknown]
  - Asthenia [Unknown]
  - Chest discomfort [Unknown]
  - Tachypnoea [Unknown]

NARRATIVE: CASE EVENT DATE: 20211215
